FAERS Safety Report 5944727-9 (Version None)
Quarter: 2008Q4

REPORT INFORMATION
  Report Type: 
  Country: None (occurrence: None)
  Receive Date: 20081107
  Receipt Date: 20081029
  Transmission Date: 20090506
  Serious: Yes (Hospitalization)
  Sender: FDA-Public Use
  Company Number: GB-ROCHE-594306

PATIENT
  Sex: Female
  Weight: 92.7 kg

DRUGS (14)
  1. ORLISTAT [Suspect]
     Indication: OBESITY
     Route: 048
     Dates: start: 20081009
  2. BISOPROLOL FUMARATE [Concomitant]
     Indication: HYPERTENSION
     Dosage: START DATE: 20+YEARS AGO
     Route: 048
  3. OMEPRAZOLE [Concomitant]
     Dosage: START DATE: 20+ YEARS AGO
     Route: 048
  4. NITROGLYCERIN [Concomitant]
     Dosage: START DATE: 20+ YEARS AGO. SPRAY
     Route: 060
  5. VITAMIN B-12 [Concomitant]
     Indication: PERNICIOUS ANAEMIA
     Dosage: START DATE: 20+ YEARS AGO
  6. LOSARTAN POTASSIUM [Concomitant]
     Indication: HYPERTENSION
     Dosage: START DATE: 20+ YEARS AGO
     Route: 048
  7. ACETAMINOPHEN W/ CODEINE [Concomitant]
     Indication: PAIN
     Dosage: START DATE: 20+ YEARS AGO
     Route: 048
  8. GABAPENTIN [Concomitant]
     Dosage: START DATE: 20+ YEARS AGO
     Route: 048
  9. AMITRIPTYLINE HCL [Concomitant]
     Dosage: START DATE: 20+ YEARS AGO. TAKEN AT NIGHT
     Route: 048
  10. ATORVASTATIN CALCIUM [Concomitant]
     Dosage: START DATE: 20+ YEARS AGO
     Route: 048
  11. FRUSEMIDE [Concomitant]
     Dosage: START DATE: 20+ YEARS AGO
     Route: 048
  12. PREMARIN [Concomitant]
     Indication: MENOPAUSE
     Dosage: START DATE: 20+ YEARS AGO
     Route: 065
  13. NIFEDIPINE [Concomitant]
     Dosage: START DATE: 20+ YEARS AGO
     Route: 048
  14. CLOPIDOGREL [Concomitant]
     Dosage: START DATE: 20+ YEARS AGO
     Route: 048

REACTIONS (1)
  - CARDIAC ASTHMA [None]
